FAERS Safety Report 20469530 (Version 1)
Quarter: 2022Q1

REPORT INFORMATION
  Report Type: Spontaneous
  Country: NO (occurrence: NO)
  Receive Date: 20220214
  Receipt Date: 20220214
  Transmission Date: 20220423
  Serious: Yes (Other)
  Sender: FDA-Public Use
  Company Number: None

PATIENT
  Age: 27 Year
  Sex: Male
  Weight: 66 kg

DRUGS (2)
  1. METHYLPHENIDATE [Suspect]
     Active Substance: METHYLPHENIDATE
     Indication: Attention deficit hyperactivity disorder
     Dosage: 40 MG, N06BA04 - METHYLPHENIDATE - ONGOING TREATMENTSUBTANCE NAME : METHYLPHENIDATE
     Route: 048
     Dates: start: 20211118
  2. Betacaroten [Concomitant]
     Dosage: 15 MG

REACTIONS (3)
  - Erectile dysfunction [Recovered/Resolved with Sequelae]
  - Peripheral coldness [Not Recovered/Not Resolved]
  - Libido decreased [Recovered/Resolved with Sequelae]

NARRATIVE: CASE EVENT DATE: 20211119
